FAERS Safety Report 6670727-X (Version None)
Quarter: 2010Q2

REPORT INFORMATION
  Report Type: 
  Country: None (occurrence: None)
  Receive Date: 20100405
  Receipt Date: 20100322
  Transmission Date: 20101027
  Serious: Yes (Other)
  Sender: FDA-Public Use
  Company Number: 2010AL001937

PATIENT
  Sex: Female

DRUGS (5)
  1. METFORMIN HCL [Suspect]
     Indication: DRUG USE FOR UNKNOWN INDICATION
     Dosage: 1000 MG;BID
  2. LYRICA [Concomitant]
  3. CYMBALTA [Concomitant]
  4. DIOVAN HCT [Concomitant]
  5. TRICOR [Concomitant]

REACTIONS (5)
  - DIABETES MELLITUS [None]
  - DIZZINESS [None]
  - HYPERTENSION [None]
  - OEDEMA [None]
  - WEIGHT INCREASED [None]
